FAERS Safety Report 7632686-2 (Version None)
Quarter: 2011Q3

REPORT INFORMATION
  Report Type: 
  Country: None (occurrence: None)
  Receive Date: 20110725
  Receipt Date: 20101130
  Transmission Date: 20111222
  Serious: No
  Sender: FDA-Public Use
  Company Number: US-BRISTOL-MYERS SQUIBB COMPANY-15413370

PATIENT
  Age: 93 Year
  Sex: Female

DRUGS (8)
  1. VITAMIN D [Concomitant]
  2. LORAZEPAM [Concomitant]
  3. COREG [Concomitant]
  4. LASIX [Concomitant]
  5. POTASSIUM [Concomitant]
  6. RAMIPRIL [Concomitant]
  7. COUMADIN [Suspect]
  8. CALCIUM CARBONATE [Concomitant]

REACTIONS (2)
  - DIARRHOEA [None]
  - PROTHROMBIN TIME ABNORMAL [None]
